FAERS Safety Report 19240712 (Version 1)
Quarter: 2021Q2

REPORT INFORMATION
  Report Type: Spontaneous
  Country: US (occurrence: US)
  Receive Date: 20210511
  Receipt Date: 20210511
  Transmission Date: 20210717
  Serious: No
  Sender: FDA-Public Use
  Company Number: US-SA-2021SA155272

PATIENT
  Age: 17 Year
  Sex: Male

DRUGS (8)
  1. LIDOCAINE;PRILOCAINE [Concomitant]
  2. PENICILLIN [PENICILLIN NOS] [Concomitant]
     Active Substance: PENICILLIN
  3. FABRAZYME [Suspect]
     Active Substance: AGALSIDASE BETA
     Indication: FABRY^S DISEASE
     Dosage: 35 MG VIAL, 5 MG VIAL
     Route: 042
     Dates: start: 20171201
  4. GABAPENTIN. [Concomitant]
     Active Substance: GABAPENTIN
  5. ACETAMINOPHEN. [Concomitant]
     Active Substance: ACETAMINOPHEN
  6. STERILE WATER [Concomitant]
     Active Substance: WATER
  7. DIPHENHYDRAMINE. [Concomitant]
     Active Substance: DIPHENHYDRAMINE
  8. EPINEPHRINE. [Concomitant]
     Active Substance: EPINEPHRINE

REACTIONS (1)
  - Intentional dose omission [Unknown]

NARRATIVE: CASE EVENT DATE: 20210420
